FAERS Safety Report 25313759 (Version 1)
Quarter: 2025Q2

REPORT INFORMATION
  Report Type: Report from Study
  Country: US (occurrence: US)
  Receive Date: 20250514
  Receipt Date: 20250514
  Transmission Date: 20250717
  Serious: Yes (Other)
  Sender: VERONA PHARMA
  Company Number: US-VERONA PHARMA-VER-000808

PATIENT
  Sex: Female

DRUGS (1)
  1. OHTUVAYRE [Suspect]
     Active Substance: ENSIFENTRINE
     Indication: Product used for unknown indication
     Dosage: 3 MILLIGRAM, BID (ONCE IN THE MORNING AND ONCE IN HTE EVENING)
     Dates: start: 202410, end: 20241105

REACTIONS (3)
  - Depression suicidal [Unknown]
  - Neoplasm malignant [Unknown]
  - Suicidal ideation [Unknown]
